FAERS Safety Report 6379487-3 (Version None)
Quarter: 2009Q3

REPORT INFORMATION
  Report Type: 
  Country: None (occurrence: None)
  Receive Date: 20090923
  Receipt Date: 20090923
  Transmission Date: 20100115
  Serious: Yes (Hospitalization)
  Sender: FDA-Public Use
  Company Number: None

PATIENT
  Sex: Female
  Weight: 14.8 kg

DRUGS (8)
  1. ONCASPAR [Suspect]
     Dosage: 3175 IU
     Dates: end: 20090807
  2. DEXAMETHASONE 0.5MG TAB [Suspect]
     Dosage: 84 MG
     Dates: end: 20090716
  3. THIOGUANINE [Suspect]
     Dosage: 560 MG
     Dates: end: 20090806
  4. VINCRISTINE SULFATE [Suspect]
     Dosage: 4.9 MG
     Dates: end: 20090814
  5. CYCLOPHOSPHAMIDE [Suspect]
     Dosage: 640 MG
     Dates: end: 20090724
  6. CYTARABINE [Suspect]
     Dosage: 400 MG
     Dates: end: 20090803
  7. DOXORUBICIN HCL [Suspect]
     Dosage: 48 MG
     Dates: end: 20090710
  8. METHOTREXATE [Suspect]
     Dosage: 36 MG
     Dates: end: 20090731

REACTIONS (3)
  - HIGH DENSITY LIPOPROTEIN INCREASED [None]
  - HYPERTRIGLYCERIDAEMIA [None]
  - LOW DENSITY LIPOPROTEIN INCREASED [None]
